FAERS Safety Report 7983625-6 (Version None)
Quarter: 2011Q4

REPORT INFORMATION
  Report Type: 
  Country: None (occurrence: None)
  Receive Date: 20111215
  Receipt Date: 20111212
  Transmission Date: 20120403
  Serious: Yes (Death, Hospitalization)
  Sender: FDA-Public Use
  Company Number: IT-ASTRAZENECA-2011SE74718

PATIENT
  Sex: Female

DRUGS (8)
  1. LASIX [Concomitant]
     Route: 048
     Dates: start: 20111124
  2. ARIMIDEX [Suspect]
     Indication: BREAST CANCER
     Route: 048
     Dates: start: 20111017, end: 20111202
  3. VASEXTEN [Concomitant]
     Route: 048
     Dates: end: 20111123
  4. ASPIRIN [Concomitant]
     Route: 048
     Dates: start: 20111124
  5. PANTOPRAZOLE SODIUM [Concomitant]
     Route: 048
     Dates: end: 20111123
  6. FIDATO [Concomitant]
     Route: 042
     Dates: start: 20111124
  7. ASPIRIN [Concomitant]
     Route: 048
     Dates: end: 20111123
  8. NEXIUM [Concomitant]
     Route: 048
     Dates: start: 20111124

REACTIONS (2)
  - DEEP VEIN THROMBOSIS [None]
  - LIVER DISORDER [None]
